FAERS Safety Report 22935975 (Version 2)
Quarter: 2023Q4

REPORT INFORMATION
  Report Type: Spontaneous
  Country: US (occurrence: US)
  Receive Date: 20230912
  Receipt Date: 20231121
  Transmission Date: 20240110
  Serious: Yes (Other)
  Sender: FDA-Public Use
  Company Number: US-009507513-2309USA002784

PATIENT
  Sex: Female

DRUGS (1)
  1. KEYTRUDA [Suspect]
     Active Substance: PEMBROLIZUMAB
     Indication: Triple negative breast cancer
     Dosage: UNK
     Dates: start: 2023

REACTIONS (5)
  - Cancer surgery [Unknown]
  - Radiotherapy to breast [Unknown]
  - Malignant neoplasm progression [Unknown]
  - Vascular access site discomfort [Not Recovered/Not Resolved]
  - Vascular access site pain [Not Recovered/Not Resolved]

NARRATIVE: CASE EVENT DATE: 20230101
